FAERS Safety Report 9577825 (Version 2)
Quarter: 2013Q4

REPORT INFORMATION
  Report Type: Spontaneous
  Country: US (occurrence: US)
  Receive Date: 20131001
  Receipt Date: 20131001
  Transmission Date: 20140711
  Serious: No
  Sender: FDA-Public Use
  Company Number: US-AMGEN-USASP2013008548

PATIENT
  Sex: Female
  Weight: 76.64 kg

DRUGS (7)
  1. ENBREL [Suspect]
     Indication: RHEUMATOID ARTHRITIS
     Dosage: 50 MG, QWK
     Route: 058
  2. PREDNISON [Concomitant]
     Dosage: 20 MG, UNK
  3. DIOVAN [Concomitant]
     Dosage: 160 MG, UNK
  4. METOPROLOL TARTRATE [Concomitant]
     Dosage: 50 MG, UNK
  5. VITAMIN D                          /00107901/ [Concomitant]
     Dosage: 1000 UNIT, UNK
  6. CALCIUM [Concomitant]
     Dosage: 500 UNK, UNK
  7. MULTIVITAMINS, PLAIN [Concomitant]
     Dosage: UNK

REACTIONS (2)
  - Sinusitis [Recovered/Resolved]
  - Therapeutic response decreased [Unknown]
